FAERS Safety Report 8254741-9 (Version None)
Quarter: 2012Q2

REPORT INFORMATION
  Report Type: 
  Country: None (occurrence: None)
  Receive Date: 20120403
  Receipt Date: 20120323
  Transmission Date: 20120825
  Serious: Yes (Hospitalization)
  Sender: FDA-Public Use
  Company Number: PHHY2012MX026158

PATIENT
  Sex: Male

DRUGS (4)
  1. LANOXIN [Concomitant]
     Dosage: 0.5 DF, QD (FROM MONDAY TO FRIDAY)
     Dates: start: 20120201
  2. DIOVAN HCT [Suspect]
     Dosage: 1 DF, QD
     Route: 048
  3. GALVUS MET [Concomitant]
     Indication: DIABETES MELLITUS
     Dosage: 2 DF, QD
     Dates: start: 20120201
  4. SOMAZINA [Concomitant]
     Dosage: 2 DF, QD
     Dates: start: 20120201

REACTIONS (3)
  - SPEECH DISORDER [None]
  - RESTLESSNESS [None]
  - CEREBRAL DISORDER [None]
